FAERS Safety Report 9662032 (Version 1)
Quarter: 2013Q4

REPORT INFORMATION
  Report Type: Spontaneous
  Country: DE (occurrence: None)
  Receive Date: 20131030
  Receipt Date: 20131030
  Transmission Date: 20140711
  Serious: Yes (Other)
  Sender: FDA-Public Use
  Company Number: 1310-1349

PATIENT
  Age: 67 Year
  Sex: Female

DRUGS (1)
  1. EYLEA [Suspect]
     Route: 031

REACTIONS (1)
  - Hypertensive crisis [None]
